FAERS Safety Report 24294552 (Version 1)
Quarter: 2024Q3

REPORT INFORMATION
  Report Type: Report from Study
  Country: US (occurrence: US)
  Receive Date: 20240906
  Receipt Date: 20240906
  Transmission Date: 20241017
  Serious: Yes (Death)
  Sender: BAYER
  Company Number: US-BAYER-2024A127751

PATIENT
  Age: 67 Year
  Sex: Female
  Weight: 48.073 kg

DRUGS (20)
  1. ADEMPAS [Suspect]
     Active Substance: RIOCIGUAT
     Indication: Pulmonary arterial hypertension
     Dosage: UNK
     Dates: start: 20211228
  2. ADEMPAS [Suspect]
     Active Substance: RIOCIGUAT
     Indication: Pulmonary arterial hypertension
     Dosage: 2 MG, TID
     Route: 048
  3. UPTRAVI [Concomitant]
     Active Substance: SELEXIPAG
  4. VANCOMYCIN HYDROCHLORIDE [Concomitant]
     Active Substance: VANCOMYCIN HYDROCHLORIDE
  5. PROLIA [Concomitant]
     Active Substance: DENOSUMAB
  6. ALBUTEROL SULFATE [Concomitant]
     Active Substance: ALBUTEROL SULFATE
  7. ELIQUIS [Concomitant]
     Active Substance: APIXABAN
  8. VITAMINS [Concomitant]
     Active Substance: VITAMINS
  9. CLARITIN [Concomitant]
     Active Substance: LORATADINE
  10. OPSUMIT [Concomitant]
     Active Substance: MACITENTAN
  11. BENADRYL ALLERGY [Concomitant]
     Active Substance: DIPHENHYDRAMINE HYDROCHLORIDE
  12. OXYGEN [Concomitant]
     Active Substance: OXYGEN
  13. ASPIRIN [Concomitant]
     Active Substance: ASPIRIN
  14. LETROZOLE [Concomitant]
     Active Substance: LETROZOLE
  15. DORZOLAMIDE [Concomitant]
     Active Substance: DORZOLAMIDE
  16. DIGOXIN [Concomitant]
     Active Substance: DIGOXIN
  17. MIDODRINE HYDROCHLORIDE [Concomitant]
     Active Substance: MIDODRINE HYDROCHLORIDE
  18. COMBIGAN [Concomitant]
     Active Substance: BRIMONIDINE TARTRATE\TIMOLOL MALEATE
  19. ZYRTEC [Concomitant]
     Active Substance: CETIRIZINE HYDROCHLORIDE
  20. ROCKLATAN [Concomitant]
     Active Substance: LATANOPROST\NETARSUDIL MESYLATE

REACTIONS (1)
  - Death [Fatal]
